FAERS Safety Report 6745840-9 (Version None)
Quarter: 2010Q2

REPORT INFORMATION
  Report Type: 
  Country: None (occurrence: None)
  Receive Date: 20100528
  Receipt Date: 20100517
  Transmission Date: 20101027
  Serious: Yes (Life-Threatening, Hospitalization)
  Sender: FDA-Public Use
  Company Number: FR-BRISTOL-MYERS SQUIBB COMPANY-15121387

PATIENT
  Age: 69 Year
  Sex: Male

DRUGS (8)
  1. GLUCOPHAGE [Suspect]
     Indication: TYPE 2 DIABETES MELLITUS
  2. SERTRALINE HCL [Concomitant]
  3. KARDEGIC [Concomitant]
  4. CAPTOPRIL [Concomitant]
  5. MOPRAL [Concomitant]
  6. GLIBENCLAMIDE [Concomitant]
  7. SPIRIVA [Concomitant]
  8. FORADIL [Concomitant]

REACTIONS (3)
  - FALL [None]
  - LACTIC ACIDOSIS [None]
  - LUNG DISORDER [None]
